FAERS Safety Report 19584298 (Version 2)
Quarter: 2021Q3

REPORT INFORMATION
  Report Type: Spontaneous
  Country: FR (occurrence: FR)
  Receive Date: 20210720
  Receipt Date: 20210722
  Transmission Date: 20211014
  Serious: Yes (Other)
  Sender: FDA-Public Use
  Company Number: PHHY2017FR202537

PATIENT
  Sex: Female

DRUGS (10)
  1. 6?MERCAPTOPURINE MONOHYDRATE [Suspect]
     Active Substance: MERCAPTOPURINE
     Indication: ACUTE LYMPHOCYTIC LEUKAEMIA
     Dosage: 46 MG
     Route: 048
     Dates: start: 20161201, end: 20170217
  2. RIVOTRIL [Concomitant]
     Active Substance: CLONAZEPAM
     Indication: NEUROPATHY PERIPHERAL
     Dosage: UNK
     Route: 065
  3. PEGASPARGASE [Suspect]
     Active Substance: PEGASPARGASE
     Indication: ACUTE LYMPHOCYTIC LEUKAEMIA
     Dosage: 1125 IU
     Route: 042
     Dates: start: 20161106
  4. VENTOLINE [Concomitant]
     Active Substance: ALBUTEROL
     Indication: BRONCHIAL HYPERREACTIVITY
     Dosage: UNK
     Route: 065
  5. DEXAMETHASONE. [Suspect]
     Active Substance: DEXAMETHASONE
     Indication: ACUTE LYMPHOCYTIC LEUKAEMIA
     Dosage: 5.5 MG
     Route: 048
     Dates: start: 20161201, end: 20170130
  6. METHOTREXATE. [Suspect]
     Active Substance: METHOTREXATE
     Dosage: 22 MG
     Route: 048
     Dates: start: 20161208, end: 20170218
  7. VINCRISTINE [Suspect]
     Active Substance: VINCRISTINE
     Indication: ACUTE LYMPHOCYTIC LEUKAEMIA
     Dosage: 1.4 MG
     Route: 042
     Dates: start: 20161201, end: 20170203
  8. METHOTREXATE. [Suspect]
     Active Substance: METHOTREXATE
     Indication: PRODUCT USED FOR UNKNOWN INDICATION
     Dosage: 12 MG
     Route: 037
     Dates: start: 20161202, end: 20170221
  9. ERWINASE [Suspect]
     Active Substance: ASPARAGINASE ERWINIA CHRYSANTHEMI
     Indication: ACUTE LYMPHOCYTIC LEUKAEMIA
     Dosage: 19000 IU, UNK
     Route: 042
     Dates: start: 20161222, end: 20170210
  10. PEGASPARGASE [Suspect]
     Active Substance: PEGASPARGASE
     Dosage: 450 IU
     Route: 042
     Dates: start: 20161212

REACTIONS (1)
  - Transaminases increased [Recovered/Resolved]

NARRATIVE: CASE EVENT DATE: 20161208
